FAERS Safety Report 14149746 (Version 2)
Quarter: 2018Q1

REPORT INFORMATION
  Report Type: Report from Study
  Country: US (occurrence: US)
  Receive Date: 20171101
  Receipt Date: 20180109
  Transmission Date: 20180508
  Serious: Yes (Hospitalization)
  Sender: FDA-Public Use
  Company Number: US-TESARO, INC-US-2017TSO03604

PATIENT

DRUGS (3)
  1. ZEJULA [Suspect]
     Active Substance: NIRAPARIB
     Indication: OVARIAN CANCER STAGE IV
     Dosage: 400 MG OVER THE COURSE OF THE DAY OR NIGHT
  2. ZEJULA [Suspect]
     Active Substance: NIRAPARIB
     Indication: OVARIAN CANCER
     Dosage: 300 MG, QD
     Route: 048
     Dates: start: 201710
  3. ZEJULA [Suspect]
     Active Substance: NIRAPARIB
     Indication: NEOPLASM MALIGNANT
     Dosage: UNK
     Route: 048
     Dates: end: 201711

REACTIONS (31)
  - Red blood cell count decreased [Not Recovered/Not Resolved]
  - Quality of life decreased [Unknown]
  - Drug intolerance [Unknown]
  - Malaise [Unknown]
  - Mineral supplementation [Unknown]
  - Platelet count decreased [Unknown]
  - Abdominal discomfort [Not Recovered/Not Resolved]
  - Restless legs syndrome [Unknown]
  - Muscular weakness [Unknown]
  - Hyporeflexia [Unknown]
  - Faeces discoloured [Unknown]
  - Disturbance in attention [Unknown]
  - Cognitive disorder [Unknown]
  - Fine motor skill dysfunction [Unknown]
  - Drug ineffective [Unknown]
  - Fatigue [Unknown]
  - Diarrhoea [Not Recovered/Not Resolved]
  - Vision blurred [Not Recovered/Not Resolved]
  - Off label use [Recovered/Resolved]
  - Frustration tolerance decreased [Unknown]
  - Rectal haemorrhage [Unknown]
  - Internal haemorrhage [Unknown]
  - Gait disturbance [Unknown]
  - Nausea [Not Recovered/Not Resolved]
  - Vomiting [Not Recovered/Not Resolved]
  - Balance disorder [Unknown]
  - Hypersomnia [Unknown]
  - Adverse reaction [Unknown]
  - Dizziness [Unknown]
  - Memory impairment [Unknown]
  - Physical disability [Unknown]
